FAERS Safety Report 7586268-1 (Version None)
Quarter: 2011Q3

REPORT INFORMATION
  Report Type: 
  Country: None (occurrence: None)
  Receive Date: 20110701
  Receipt Date: 20110627
  Transmission Date: 20111222
  Serious: Yes (Other)
  Sender: FDA-Public Use
  Company Number: US-ABBOTT-11P-163-0835136-00

PATIENT
  Sex: Female

DRUGS (3)
  1. UNKNOWN OTHER MEDICATION [Suspect]
     Indication: PSORIASIS
     Dosage: 1 ^DIRTY PILL^ A DAY
     Route: 048
     Dates: start: 20110301, end: 20110301
  2. HUMIRA [Suspect]
     Indication: PSORIASIS
     Route: 058
     Dates: start: 20110301, end: 20110501
  3. CYCLOSPORINE [Suspect]
     Indication: PSORIASIS
     Dates: start: 20110301, end: 20110501

REACTIONS (11)
  - SKIN ODOUR ABNORMAL [None]
  - SKIN HAEMORRHAGE [None]
  - NIGHTMARE [None]
  - SKIN FISSURES [None]
  - RENAL DISORDER [None]
  - SKIN BURNING SENSATION [None]
  - URINE ODOUR ABNORMAL [None]
  - CHROMATURIA [None]
  - PSORIASIS [None]
  - POLLAKIURIA [None]
  - SKIN PLAQUE [None]
